FAERS Safety Report 10085128 (Version 1)
Quarter: 2014Q2

REPORT INFORMATION
  Report Type: Spontaneous
  Country: GB (occurrence: GB)
  Receive Date: 20140417
  Receipt Date: 20140417
  Transmission Date: 20141212
  Serious: Yes (Other)
  Sender: FDA-Public Use
  Company Number: CHNY2014GB001057

PATIENT
  Age: 43 Year
  Sex: 0

DRUGS (14)
  1. SCOPODERM TTS [Suspect]
     Dosage: 1 MG, Q72H
     Route: 062
  2. NUTRITION SUPPLEMENTS [Concomitant]
     Dosage: 30 ML, TID
     Route: 050
  3. CHLORHEXIDINE GLUCONATE [Concomitant]
     Dosage: 16 GTT, QD
     Route: 050
  4. CITALOPRAM [Concomitant]
     Dosage: 10 ML, BID
     Route: 050
  5. FERROUS FUMARATE [Concomitant]
     Dosage: 10 ML, BID
     Route: 050
  6. LACTULOSE [Concomitant]
     Dosage: 10 ML, BID
     Route: 050
  7. LACTULOSE [Concomitant]
     Dosage: UNK
  8. LEVOTHYROXINE SODIUM [Concomitant]
     Dosage: 100 UG, QD
     Route: 050
  9. OMEPRAZOLE [Concomitant]
     Dosage: 40 MG, QD
     Route: 050
  10. OXYNORM [Concomitant]
     Dosage: 5MG TO 10MG WHEN REQUIRED
     Route: 050
  11. PARACETAMOL [Concomitant]
     Route: 050
  12. SENNA [Concomitant]
     Dosage: AT NIGHT
     Route: 050
  13. ZOPICLONE [Concomitant]
     Dosage: 7.5 MG, UNK
     Route: 050
  14. DICLOFENAC SODIUM [Concomitant]
     Dosage: 50 MG, TID
     Route: 050

REACTIONS (1)
  - Swelling face [Unknown]
